FAERS Safety Report 5032585-9 (Version None)
Quarter: 2006Q2

REPORT INFORMATION
  Report Type: 
  Country: None (occurrence: None)
  Receive Date: 20060620
  Receipt Date: 20060620
  Transmission Date: 20061013
  Serious: No
  Sender: FDA-Public Use
  Company Number: None

PATIENT
  Sex: Female
  Weight: 13 kg

DRUGS (1)
  1. AMOXICILLIN [Suspect]
     Indication: EAR INFECTION
     Dosage: BID - P.O.
     Route: 048

REACTIONS (1)
  - DRUG ERUPTION [None]
